FAERS Safety Report 8418920-X (Version None)
Quarter: 2012Q2

REPORT INFORMATION
  Report Type: 
  Country: None (occurrence: None)
  Receive Date: 20120607
  Receipt Date: 20120606
  Transmission Date: 20120825
  Serious: Yes (Death)
  Sender: FDA-Public Use
  Company Number: US-PFIZER INC-2010US-31069

PATIENT
  Age: 41 Year
  Sex: Male

DRUGS (4)
  1. VENLAFAXINE [Suspect]
     Dosage: UNK
     Route: 048
  2. TRAZODONE HCL [Suspect]
     Dosage: UNK
     Route: 048
  3. ESZOPICLONE [Suspect]
     Dosage: UNK
     Route: 048
  4. VERAPAMIL HCL [Suspect]
     Dosage: UNK
     Route: 048

REACTIONS (1)
  - COMPLETED SUICIDE [None]
